FAERS Safety Report 8327626-7 (Version None)
Quarter: 2012Q2

REPORT INFORMATION
  Report Type: 
  Country: None (occurrence: None)
  Receive Date: 20120502
  Receipt Date: 20110704
  Transmission Date: 20120825
  Serious: Yes (Other)
  Sender: FDA-Public Use
  Company Number: DK-BAYER-2011-057891

PATIENT
  Age: 81 Year
  Sex: Female

DRUGS (1)
  1. GADOBUTROL [Suspect]
     Indication: NUCLEAR MAGNETIC RESONANCE IMAGING
     Dosage: 21 ML, UNK
     Dates: start: 20081107

REACTIONS (1)
  - NEPHROGENIC SYSTEMIC FIBROSIS [None]
